FAERS Safety Report 8119600-0 (Version None)
Quarter: 2012Q1

REPORT INFORMATION
  Report Type: 
  Country: None (occurrence: None)
  Receive Date: 20120207
  Receipt Date: 20120131
  Transmission Date: 20120608
  Serious: Yes (Hospitalization, Other)
  Sender: FDA-Public Use
  Company Number: PHEH2010US03510

PATIENT
  Sex: Male

DRUGS (29)
  1. AVANDIA [Concomitant]
  2. PENICILLIN [Concomitant]
  3. ARANESP [Concomitant]
     Dosage: 400 UG, QW
  4. ZOMETA [Suspect]
     Indication: BONE DISORDER
     Dosage: 4 MG, MONTHLY
     Dates: end: 20080401
  5. GLYBURIDE [Concomitant]
  6. WARFARIN SODIUM [Concomitant]
  7. METOPROLOL [Concomitant]
  8. ASPIRIN [Concomitant]
  9. ALOXI [Concomitant]
     Dosage: 250 UG, UNK
     Route: 042
  10. OMEPRAZOLE [Concomitant]
  11. AMITRIPTYLINE HCL [Concomitant]
  12. DECADRON [Concomitant]
     Dosage: 10 MG, UNK
     Route: 042
  13. METFORMIN HCL [Concomitant]
  14. NOVOLOG [Concomitant]
  15. NIASPAN [Concomitant]
  16. MECLIZINE [Concomitant]
  17. GEMFIBROZIL [Concomitant]
  18. DACARBAZINE [Concomitant]
     Dosage: 600 MG, UNK
     Route: 042
  19. ADRIAMYCIN PFS [Concomitant]
     Dosage: 48 MG, UNK
     Route: 042
  20. ACCURETIC [Concomitant]
  21. RADIATION THERAPY [Concomitant]
  22. CHEMOTHERAPEUTICS [Concomitant]
  23. MOTRIN [Concomitant]
  24. ALLOPURINOL [Concomitant]
  25. ROCEPHIN [Concomitant]
     Route: 042
  26. TRICOR [Concomitant]
     Dosage: 145 MG, QD
  27. LANTUS [Concomitant]
  28. BLEOMYCIN SULFATE [Concomitant]
     Route: 042
  29. VINBLASTINE SULFATE [Concomitant]

REACTIONS (73)
  - NEOPLASM MALIGNANT [None]
  - PALPITATIONS [None]
  - LYMPHOMA [None]
  - DYSURIA [None]
  - INTERVERTEBRAL DISC SPACE NARROWING [None]
  - HEPATOMEGALY [None]
  - URETHRITIS [None]
  - DEFORMITY [None]
  - OVERDOSE [None]
  - HAEMATURIA [None]
  - PROSTATITIS [None]
  - BRONCHITIS [None]
  - UPPER RESPIRATORY TRACT INFECTION [None]
  - PARAESTHESIA [None]
  - ARTHRITIS [None]
  - GASTROINTESTINAL MOTILITY DISORDER [None]
  - INTERVERTEBRAL DISC DEGENERATION [None]
  - RADICULOPATHY [None]
  - PNEUMONIA [None]
  - METASTASES TO LUNG [None]
  - URINARY TRACT INFECTION [None]
  - URETHRAL STENOSIS [None]
  - BACK PAIN [None]
  - WEIGHT INCREASED [None]
  - OEDEMA PERIPHERAL [None]
  - SLEEP APNOEA SYNDROME [None]
  - ARTHRALGIA [None]
  - HYPOTENSION [None]
  - PROSTATOMEGALY [None]
  - HAEMORRHAGE URINARY TRACT [None]
  - SPLENOMEGALY [None]
  - METASTASES TO SPINE [None]
  - ABDOMINAL PAIN [None]
  - TESTICULAR MASS [None]
  - MUSCULOSKELETAL CHEST PAIN [None]
  - HODGKIN'S DISEASE STAGE IV [None]
  - CHEST DISCOMFORT [None]
  - SUPRAVENTRICULAR TACHYCARDIA [None]
  - NEUROPATHY PERIPHERAL [None]
  - PARTNER STRESS [None]
  - ANAEMIA [None]
  - SEPSIS [None]
  - LEFT VENTRICULAR HYPERTROPHY [None]
  - DEHYDRATION [None]
  - LYMPHADENOPATHY MEDIASTINAL [None]
  - HYPERLIPIDAEMIA [None]
  - METASTASES TO BONE [None]
  - PRESYNCOPE [None]
  - METABOLIC SYNDROME [None]
  - DYSPNOEA [None]
  - HEART RATE IRREGULAR [None]
  - OSTEONECROSIS OF JAW [None]
  - INFECTION [None]
  - ATRIAL FIBRILLATION [None]
  - SACRALISATION [None]
  - DIVERTICULUM INTESTINAL [None]
  - POOR DENTAL CONDITION [None]
  - PERIODONTAL DISEASE [None]
  - NEPHROLITHIASIS [None]
  - TRICUSPID VALVE INCOMPETENCE [None]
  - THROMBOCYTOPENIA [None]
  - POLYDIPSIA [None]
  - DYSLIPIDAEMIA [None]
  - PAIN [None]
  - OSTEOLYSIS [None]
  - HYPONATRAEMIA [None]
  - NASAL ULCER [None]
  - HYPOAESTHESIA [None]
  - ATELECTASIS [None]
  - WEIGHT DECREASED [None]
  - MUSCLE SPASMS [None]
  - FALL [None]
  - SWELLING [None]
